FAERS Safety Report 4476546-7 (Version None)
Quarter: 2004Q4

REPORT INFORMATION
  Report Type: 
  Country: None (occurrence: None)
  Receive Date: 20041013
  Receipt Date: 20040928
  Transmission Date: 20050328
  Serious: Yes (Hospitalization)
  Sender: FDA-Public Use
  Company Number: USA040978439

PATIENT
  Age: 68 Year
  Sex: Female

DRUGS (4)
  1. FORTEO [Suspect]
     Indication: OSTEOPOROSIS
  2. CALCIUM CARBONATE [Concomitant]
  3. M.V.I. [Concomitant]
  4. VITAMIN D [Concomitant]

REACTIONS (1)
  - HYPERCALCAEMIA [None]
